FAERS Safety Report 9558311 (Version 3)
Quarter: 2013Q4

REPORT INFORMATION
  Report Type: Spontaneous
  Country: CZ (occurrence: CZ)
  Receive Date: 20130926
  Receipt Date: 20131007
  Transmission Date: 20140711
  Serious: Yes (Other)
  Sender: FDA-Public Use
  Company Number: CZ-US-EMD SERONO, INC.-7236153

PATIENT
  Sex: Female

DRUGS (3)
  1. REBIF [Suspect]
     Indication: MULTIPLE SCLEROSIS
     Dates: start: 201302, end: 20130901
  2. REBIF [Suspect]
     Dates: start: 20130919
  3. VIGANTOL ^BAYER^ [Suspect]
     Indication: PRODUCT USED FOR UNKNOWN INDICATION

REACTIONS (2)
  - Ectopic pregnancy [Recovered/Resolved]
  - Maternal exposure timing unspecified [Recovered/Resolved]
